FAERS Safety Report 4394297-4 (Version None)
Quarter: 2004Q3

REPORT INFORMATION
  Report Type: 
  Country: None (occurrence: None)
  Receive Date: 20040707
  Receipt Date: 20040707
  Transmission Date: 20050211
  Serious: Yes (Hospitalization)
  Sender: FDA-Public Use
  Company Number: None

PATIENT
  Age: 42 Year
  Sex: Female
  Weight: 51.8 kg

DRUGS (10)
  1. IRINOTECAN CPT11 PHARMACIA / PFIZER [Suspect]
     Indication: NON-SMALL CELL LUNG CANCER
     Dosage: 100 MG/M2 D 1 AND 8 INTRAVENOUS
     Route: 042
     Dates: start: 20040428, end: 20040428
  2. IRINOTECAN CPT11 PHARMACIA / PFIZER [Suspect]
  3. XELODA [Suspect]
     Indication: NON-SMALL CELL LUNG CANCER
     Dosage: 2000 MG/M2 D 2-15 ORAL
     Route: 048
  4. DILANTIN [Concomitant]
  5. FENTANYL [Concomitant]
  6. OXYCODONE HCL [Concomitant]
  7. NEXIUM [Concomitant]
  8. AMBIEN [Concomitant]
  9. MEGACE [Concomitant]
  10. ESTROSTEP [Concomitant]

REACTIONS (5)
  - ABDOMINAL PAIN [None]
  - CONVULSION [None]
  - DISEASE RECURRENCE [None]
  - METASTASES TO CENTRAL NERVOUS SYSTEM [None]
  - TUMOUR ASSOCIATED FEVER [None]
